FAERS Safety Report 6035492-8 (Version None)
Quarter: 2009Q1

REPORT INFORMATION
  Report Type: 
  Country: None (occurrence: None)
  Receive Date: 20090108
  Receipt Date: 20081229
  Transmission Date: 20090719
  Serious: Yes (Hospitalization)
  Sender: FDA-Public Use
  Company Number: 110212

PATIENT
  Age: 16 Month
  Sex: Male

DRUGS (2)
  1. NAPROXEN [Suspect]
     Indication: JUVENILE ARTHRITIS
     Dosage: 17MG/KG/DAY/ ORAL
     Route: 048
  2. TRIAMCINOLONE HEXACETONIDE [Concomitant]

REACTIONS (11)
  - ASCITES [None]
  - CARDIAC MURMUR [None]
  - HEART RATE INCREASED [None]
  - IRON DEFICIENCY ANAEMIA [None]
  - OEDEMA PERIPHERAL [None]
  - PERIORBITAL OEDEMA [None]
  - PITTING OEDEMA [None]
  - PLATELET COUNT INCREASED [None]
  - PROTEIN-LOSING GASTROENTEROPATHY [None]
  - RESPIRATORY RATE INCREASED [None]
  - WEIGHT DECREASED [None]
